FAERS Safety Report 20429409 (Version 5)
Quarter: 2022Q4

REPORT INFORMATION
  Report Type: Report from Study
  Country: ES (occurrence: None)
  Receive Date: 20220204
  Receipt Date: 20221227
  Transmission Date: 20230113
  Serious: Yes (Hospitalization)
  Sender: FDA-Public Use
  Company Number: ES-ROCHE-3012605

PATIENT
  Age: 59 Year
  Sex: Female
  Weight: 74.5 kg

DRUGS (17)
  1. TIRAGOLUMAB [Suspect]
     Active Substance: TIRAGOLUMAB
     Indication: Breast cancer metastatic
     Dosage: ON 16/DEC/2021, SHE RECEIVED MOST RECENT DOSE (840 MG) OF TIRAGOLUMAB PRIOR TO SAE.
     Route: 042
     Dates: start: 20210923
  2. ATEZOLIZUMAB [Suspect]
     Active Substance: ATEZOLIZUMAB
     Indication: Breast cancer metastatic
     Dosage: ON 16/DEC/2021, SHE RECEIVED MOST RECENT DOSE (1680 MG) OF ATEZOLIZUMAB PRIOR TO SAE.
     Route: 041
     Dates: start: 20210923
  3. PACLITAXEL [Suspect]
     Active Substance: PACLITAXEL
     Indication: Breast cancer metastatic
     Dosage: ON 30/DEC/2021, SHE RECEIVED MOST RECENT DOSE (184 MG) OF NAB-PACLITAXEL PRIOR TO SAE.
     Route: 042
     Dates: start: 20210923
  4. GABAPENTIN [Concomitant]
     Active Substance: GABAPENTIN
     Indication: Pain
     Dates: start: 20210907
  5. VITAMIN D3 [Concomitant]
     Active Substance: CHOLECALCIFEROL
     Indication: Prophylaxis
     Dates: start: 20210831
  6. DIAZEPAM [Concomitant]
     Active Substance: DIAZEPAM
     Indication: Prophylaxis
     Dates: start: 202109
  7. OMEPRAZOLE [Concomitant]
     Active Substance: OMEPRAZOLE
     Indication: Prophylaxis
     Dates: start: 202109
  8. ACETAMINOPHEN [Concomitant]
     Active Substance: ACETAMINOPHEN
     Indication: Arthralgia
     Dates: start: 20211118, end: 20220110
  9. ACETAMINOPHEN [Concomitant]
     Active Substance: ACETAMINOPHEN
     Indication: Headache
     Dates: start: 20220112, end: 20220112
  10. ACETAMINOPHEN [Concomitant]
     Active Substance: ACETAMINOPHEN
     Indication: Abdominal pain upper
     Route: 042
     Dates: start: 20220124, end: 20220128
  11. DEXKETOPROFEN [Concomitant]
     Active Substance: DEXKETOPROFEN
     Indication: Arthralgia
     Dates: start: 20211118, end: 20220111
  12. BILASTINE [Concomitant]
     Active Substance: BILASTINE
     Indication: Rash
     Dates: start: 20211125, end: 20211226
  13. MOMETASONE [Concomitant]
     Active Substance: MOMETASONE
     Indication: Rash
     Dates: start: 20211125, end: 20211226
  14. CETIRIZINE [Concomitant]
     Active Substance: CETIRIZINE HYDROCHLORIDE
     Indication: Rash
     Dates: start: 20211228, end: 20220110
  15. CLOBETASOL [Concomitant]
     Active Substance: CLOBETASOL
     Indication: Rash
     Dosage: DOSE : 0.05 OTHER
     Route: 061
     Dates: start: 20211228, end: 20220110
  16. DEXAMETHASONE [Concomitant]
     Active Substance: DEXAMETHASONE
     Indication: Headache
     Route: 042
     Dates: start: 20220112, end: 20220112
  17. METOCLOPRAMIDE [Concomitant]
     Active Substance: METOCLOPRAMIDE
     Indication: Prophylaxis of nausea and vomiting
     Route: 042
     Dates: start: 20220124, end: 20220128

REACTIONS (1)
  - Syncope [Recovered/Resolved]

NARRATIVE: CASE EVENT DATE: 20220124
